FAERS Safety Report 8554614-8 (Version None)
Quarter: 2012Q3

REPORT INFORMATION
  Report Type: 
  Country: None (occurrence: None)
  Receive Date: 20120731
  Receipt Date: 20120726
  Transmission Date: 20120928
  Serious: No
  Sender: FDA-Public Use
  Company Number: US-PFIZER INC-2012181806

PATIENT
  Sex: Female
  Weight: 88 kg

DRUGS (1)
  1. PREMARIN [Suspect]
     Indication: HORMONE REPLACEMENT THERAPY
     Dosage: 0.45 MG, 1X/DAY
     Route: 048
     Dates: end: 20120701

REACTIONS (1)
  - DRUG INEFFECTIVE [None]
